FAERS Safety Report 9150267 (Version 1)
Quarter: 2013Q1

REPORT INFORMATION
  Report Type: Spontaneous
  Country: DK (occurrence: None)
  Receive Date: 20130129
  Receipt Date: 20130129
  Transmission Date: 20140127
  Serious: Yes (Disabling)
  Sender: FDA-Public Use
  Company Number: 2013MA000604

PATIENT
  Age: 15 Year
  Sex: Female

DRUGS (2)
  1. FLUOXETINE [Suspect]
     Indication: ANXIETY
     Route: 048
     Dates: start: 20120618, end: 20120702
  2. SEROQUEL [Concomitant]

REACTIONS (4)
  - Amnesia [None]
  - Confusional state [None]
  - Inappropriate schedule of drug administration [None]
  - Disorientation [None]
